FAERS Safety Report 15621160 (Version 1)
Quarter: 2018Q4

REPORT INFORMATION
  Report Type: Report from Study
  Country: SK (occurrence: SK)
  Receive Date: 20181115
  Receipt Date: 20181115
  Transmission Date: 20190205
  Serious: Yes (Other)
  Sender: FDA-Public Use
  Company Number: SK-ASTELLAS-2018US048978

PATIENT
  Age: 66 Year
  Sex: Male

DRUGS (1)
  1. ERLOTINIB [Suspect]
     Active Substance: ERLOTINIB
     Indication: LUNG ADENOCARCINOMA
     Route: 048
     Dates: start: 201705, end: 201707

REACTIONS (4)
  - Conjunctivitis [Unknown]
  - Gastrointestinal toxicity [Unknown]
  - Rash maculo-papular [Unknown]
  - Skin toxicity [Unknown]
